FAERS Safety Report 19964583 (Version 2)
Quarter: 2021Q4

REPORT INFORMATION
  Report Type: Spontaneous
  Country: US (occurrence: US)
  Receive Date: 20211018
  Receipt Date: 20211121
  Transmission Date: 20220303
  Serious: No
  Sender: FDA-Public Use
  Company Number: US-009507513-2110USA003768

PATIENT
  Age: 58 Year
  Sex: Female

DRUGS (6)
  1. CUBICIN [Suspect]
     Active Substance: DAPTOMYCIN
     Indication: Enterococcal infection
     Dosage: UNK
  2. CUBICIN [Suspect]
     Active Substance: DAPTOMYCIN
     Indication: Enterococcal infection
  3. CUBICIN [Suspect]
     Active Substance: DAPTOMYCIN
     Indication: Infectious pleural effusion
  4. MEROPENEM [Concomitant]
     Active Substance: MEROPENEM
     Indication: Enterococcal infection
     Dosage: UNK
  5. MEROPENEM [Concomitant]
     Active Substance: MEROPENEM
     Indication: Infectious pleural effusion
  6. MEROPENEM [Concomitant]
     Active Substance: MEROPENEM
     Indication: Enterococcal infection

REACTIONS (1)
  - Product use in unapproved indication [Unknown]
